FAERS Safety Report 4577119-8 (Version None)
Quarter: 2005Q1

REPORT INFORMATION
  Report Type: 
  Country: None (occurrence: None)
  Receive Date: 20050208
  Receipt Date: 20050128
  Transmission Date: 20050727
  Serious: Yes (Hospitalization)
  Sender: FDA-Public Use
  Company Number: 2004241889US

PATIENT
  Age: 74 Year
  Sex: Female
  Weight: 34.47 kg

DRUGS (1)
  1. CLINDAMYCIN HYDROCHLORIDE [Suspect]
     Indication: INFECTION
     Dosage: 1200 MG (300 MG, QID), ORAL
     Route: 048
     Dates: start: 19950419, end: 19950502

REACTIONS (3)
  - ARRHYTHMIA [None]
  - CLOSTRIDIAL INFECTION [None]
  - WEIGHT DECREASED [None]
